FAERS Safety Report 5775152-1 (Version None)
Quarter: 2008Q2

REPORT INFORMATION
  Report Type: 
  Country: None (occurrence: None)
  Receive Date: 20080616
  Receipt Date: 20080616
  Transmission Date: 20081010
  Serious: No
  Sender: FDA-Public Use
  Company Number: None

PATIENT
  Age: 44 Year
  Sex: Female
  Weight: 50.8029 kg

DRUGS (1)
  1. YAZ [Suspect]

REACTIONS (1)
  - FALSE POSITIVE LABORATORY RESULT [None]
